FAERS Safety Report 22826147 (Version 2)
Quarter: 2023Q4

REPORT INFORMATION
  Report Type: Spontaneous
  Country: PA (occurrence: PA)
  Receive Date: 20230816
  Receipt Date: 20231001
  Transmission Date: 20240110
  Serious: Yes (Hospitalization, Other)
  Sender: FDA-Public Use
  Company Number: PA-002147023-NVSC2023PA173329

PATIENT
  Age: 66 Year
  Sex: Female

DRUGS (5)
  1. FULVESTRANT [Suspect]
     Active Substance: FULVESTRANT
     Dosage: UNK
     Route: 065
  2. KISQALI [Suspect]
     Active Substance: RIBOCICLIB
     Dosage: 400 MG, QD (2)
     Route: 048
     Dates: end: 20230726
  3. KISQALI [Suspect]
     Active Substance: RIBOCICLIB
     Dosage: 400 MG, QD
     Route: 048
     Dates: start: 202203, end: 202306
  4. KISQALI [Suspect]
     Active Substance: RIBOCICLIB
     Indication: Breast cancer metastatic
     Dosage: 600 MG, QD (3)
     Route: 048
     Dates: start: 20230113
  5. MORPHINE [Concomitant]
     Active Substance: MORPHINE
     Indication: Product used for unknown indication
     Dosage: UNK
     Route: 065

REACTIONS (10)
  - Pneumonia [Unknown]
  - Pleural effusion [Not Recovered/Not Resolved]
  - Metastases to lung [Not Recovered/Not Resolved]
  - Dyspnoea [Unknown]
  - Metastases to liver [Not Recovered/Not Resolved]
  - Metastases to bone [Not Recovered/Not Resolved]
  - Decreased immune responsiveness [Not Recovered/Not Resolved]
  - Agitation [Not Recovered/Not Resolved]
  - Nodule [Unknown]
  - Drug ineffective [Unknown]

NARRATIVE: CASE EVENT DATE: 20230113
